FAERS Safety Report 17326350 (Version 1)
Quarter: 2020Q1

REPORT INFORMATION
  Report Type: Spontaneous
  Country: US (occurrence: US)
  Receive Date: 20200127
  Receipt Date: 20200127
  Transmission Date: 20200409
  Serious: No
  Sender: FDA-Public Use
  Company Number: US-PFIZER INC-2020030013

PATIENT
  Sex: Female

DRUGS (2)
  1. XELJANZ [Suspect]
     Active Substance: TOFACITINIB CITRATE
     Dosage: UNK
  2. OXYBUTYNIN. [Suspect]
     Active Substance: OXYBUTYNIN CHLORIDE
     Indication: URGE INCONTINENCE
     Dosage: UNK , DAILY

REACTIONS (3)
  - Nasopharyngitis [Unknown]
  - Drug hypersensitivity [Unknown]
  - Dry throat [Unknown]
